FAERS Safety Report 7520076-2 (Version None)
Quarter: 2011Q2

REPORT INFORMATION
  Report Type: 
  Country: None (occurrence: None)
  Receive Date: 20110602
  Receipt Date: 20110526
  Transmission Date: 20111010
  Serious: Yes (Hospitalization, Other)
  Sender: FDA-Public Use
  Company Number: US-B.I. PHARMACEUTICALS,INC./RIDGEFIELD-2011-BP-08640BP

PATIENT
  Age: 68 Year
  Sex: Male
  Weight: 74.38 kg

DRUGS (7)
  1. TRACLEER [Concomitant]
     Dosage: 125 MG
  2. ASPIRIN [Concomitant]
     Dosage: 81 MG
  3. PRADAXA [Suspect]
     Dosage: 300 MG
     Dates: start: 20110301
  4. SIMVASTATIN [Concomitant]
     Dosage: 80 MG
  5. METOPROLOL TARTRATE [Concomitant]
     Dosage: 12.5 MG
  6. FURSEMIDE [Concomitant]
     Dosage: 100 MG
  7. PRADAXA [Suspect]
     Indication: ATRIAL FIBRILLATION
     Dosage: 300 MG
     Dates: start: 20110108, end: 20110224

REACTIONS (3)
  - HEMIPARESIS [None]
  - ISCHAEMIC STROKE [None]
  - CAROTID ARTERIOSCLEROSIS [None]
